FAERS Safety Report 7432581-8 (Version None)
Quarter: 2011Q2

REPORT INFORMATION
  Report Type: 
  Country: None (occurrence: None)
  Receive Date: 20110422
  Receipt Date: 20110412
  Transmission Date: 20111010
  Serious: No
  Sender: FDA-Public Use
  Company Number: US-B.I. PHARMACEUTICALS,INC./RIDGEFIELD-2011-BP-10607BP

PATIENT
  Sex: Male

DRUGS (9)
  1. ADVAIR HFA [Concomitant]
     Indication: ASTHMA
     Dosage: 500 MG
  2. SINGULAIR [Concomitant]
     Indication: ASTHMA
     Dosage: 10 MG
  3. LISINOPRIL [Concomitant]
     Indication: CARDIAC DISORDER
     Dosage: 10 MG
  4. ALPRAZOLAM [Concomitant]
     Indication: ANXIETY
  5. MULTAQ [Concomitant]
     Indication: CARDIAC DISORDER
     Dosage: 80 MG
  6. FUROSEMIDE [Concomitant]
     Indication: FLUID RETENTION
     Dosage: 40 MG
     Dates: start: 20110201
  7. CARVEDILOL [Concomitant]
     Indication: CARDIAC DISORDER
     Dosage: 6.25 MG
  8. SERTRALINE HYDROCHLORIDE [Concomitant]
     Indication: STRESS
     Dosage: 50 MG
  9. PRADAXA [Suspect]
     Indication: ARRHYTHMIA
     Dosage: 300 MG
     Route: 048
     Dates: start: 20110310

REACTIONS (4)
  - RASH PRURITIC [None]
  - PAINFUL DEFAECATION [None]
  - GASTROOESOPHAGEAL REFLUX DISEASE [None]
  - HAEMATOCHEZIA [None]
